FAERS Safety Report 11392731 (Version 2)
Quarter: 2015Q4

REPORT INFORMATION
  Report Type: Spontaneous
  Country: US (occurrence: US)
  Receive Date: 20150818
  Receipt Date: 20151021
  Transmission Date: 20160304
  Serious: Yes (Hospitalization, Other)
  Sender: FDA-Public Use
  Company Number: US-BAXALTA-2015BAX032297

PATIENT
  Sex: Male

DRUGS (7)
  1. HEMOFIL M [Suspect]
     Active Substance: ANTIHEMOPHILIC FACTOR HUMAN
     Indication: FACTOR VIII DEFICIENCY
     Dosage: UNK
  2. FEIBA NF [Suspect]
     Active Substance: ANTI-INHIBITOR COAGULANT COMPLEX
     Indication: FACTOR VIII DEFICIENCY
  3. NOVOSEVEN [Suspect]
     Active Substance: COAGULATION FACTOR VIIA RECOMBINANT HUMAN
     Indication: FACTOR VIII DEFICIENCY
     Dosage: UNK
  4. ADVATE [Suspect]
     Active Substance: ANTIHEMOPHILIC FACTOR, HUMAN RECOMBINANT
     Indication: FACTOR VIII DEFICIENCY
     Dosage: UNK
  5. ALPHANATE [Suspect]
     Active Substance: HUMAN COAGULATION FACTOR VIII/VON WILLEBRAND FACTOR COMPLEX
     Indication: FACTOR VIII DEFICIENCY
  6. NOVOSEVEN [Suspect]
     Active Substance: COAGULATION FACTOR VIIA RECOMBINANT HUMAN
     Dosage: 15 MICROGRAMS
  7. RITUXIMAB [Suspect]
     Active Substance: RITUXIMAB
     Indication: IMMUNE TOLERANCE INDUCTION

REACTIONS (5)
  - Haemorrhage [Unknown]
  - Sepsis [Unknown]
  - Femur fracture [Unknown]
  - Factor VIII inhibition [Unknown]
  - Hip fracture [Unknown]
